FAERS Safety Report 7509648-9 (Version None)
Quarter: 2011Q2

REPORT INFORMATION
  Report Type: 
  Country: None (occurrence: None)
  Receive Date: 20110527
  Receipt Date: 20110516
  Transmission Date: 20111010
  Serious: Yes (Hospitalization)
  Sender: FDA-Public Use
  Company Number: US-JNJFOC-20110509099

PATIENT
  Sex: Male
  Weight: 41.7 kg

DRUGS (5)
  1. PREDNISONE [Concomitant]
  2. ANTIBIOTICS [Concomitant]
     Indication: INFLAMMATORY BOWEL DISEASE
  3. HUMIRA [Concomitant]
     Indication: INFLAMMATORY BOWEL DISEASE
     Dates: start: 20090417, end: 20100806
  4. REMICADE [Suspect]
     Indication: INFLAMMATORY BOWEL DISEASE
     Route: 042
     Dates: start: 20070804, end: 20090402
  5. THALIDOMIDE [Concomitant]

REACTIONS (1)
  - DEVICE DISLOCATION [None]
